FAERS Safety Report 10244371 (Version 3)
Quarter: 2014Q3

REPORT INFORMATION
  Report Type: Report from Study
  Country: GB (occurrence: None)
  Receive Date: 20140616
  Receipt Date: 20140731
  Transmission Date: 20150326
  Serious: Yes (Hospitalization)
  Sender: FDA-Public Use
  Company Number: 2313116

PATIENT
  Age: 58 Year
  Sex: Male

DRUGS (15)
  1. MORPHINE SULFATE. [Concomitant]
     Active Substance: MORPHINE SULFATE
  2. APREPITANT [Concomitant]
     Active Substance: APREPITANT
  3. TAMSULOSIN [Concomitant]
     Active Substance: TAMSULOSIN
  4. DOMPERIDONE [Concomitant]
     Active Substance: DOMPERIDONE
  5. SENNA [Concomitant]
     Active Substance: SENNA LEAF\SENNOSIDES\SENNOSIDES A AND B
  6. CIPROFLOXACIN. [Concomitant]
     Active Substance: CIPROFLOXACIN
  7. NULYTELY [Concomitant]
     Active Substance: POLYETHYLENE GLYCOL 3350\POTASSIUM CHLORIDE\SODIUM BICARBONATE\SODIUM CHLORIDE
  8. GEMCITABINE HYDROCHLORIDE. [Suspect]
     Active Substance: GEMCITABINE HYDROCHLORIDE
     Indication: BLADDER CANCER
     Route: 041
     Dates: start: 20130628, end: 20130830
  9. CISPLATIN. [Suspect]
     Active Substance: CISPLATIN
     Indication: BLADDER CANCER
     Route: 041
     Dates: start: 20130628, end: 20130830
  10. PARACETAMOL [Concomitant]
     Active Substance: ACETAMINOPHEN
  11. ONDANSETRON [Concomitant]
     Active Substance: ONDANSETRON
  12. ENOXAPARIN [Concomitant]
     Active Substance: ENOXAPARIN
  13. DEXAMETHASONE. [Concomitant]
     Active Substance: DEXAMETHASONE
  14. GABAPENTIN. [Concomitant]
     Active Substance: GABAPENTIN
  15. AMITRIPTYLINE [Concomitant]
     Active Substance: AMITRIPTYLINE

REACTIONS (5)
  - Malaise [None]
  - Bladder cancer [None]
  - Anaemia [None]
  - Dizziness [None]
  - Malignant neoplasm progression [None]

NARRATIVE: CASE EVENT DATE: 20130711
